FAERS Safety Report 4867547-5 (Version None)
Quarter: 2005Q4

REPORT INFORMATION
  Report Type: 
  Country: None (occurrence: None)
  Receive Date: 20051227
  Receipt Date: 20051227
  Transmission Date: 20060501
  Serious: Yes (Other)
  Sender: FDA-Public Use
  Company Number: None

PATIENT
  Age: 32 Year
  Sex: Female
  Weight: 68.0396 kg

DRUGS (3)
  1. CYMBALTA [Suspect]
     Indication: ANXIETY
     Dosage: 30 MG 1X FOR A WEEK PO
     Route: 048
     Dates: start: 20051114, end: 20051206
  2. CYMBALTA [Suspect]
     Indication: DEPRESSION
     Dosage: 30 MG 1X FOR A WEEK PO
     Route: 048
     Dates: start: 20051114, end: 20051206
  3. CYMBALTA [Suspect]
     Dosage: 60MG  1X A DAY PO
     Route: 048

REACTIONS (6)
  - ABORTION INDUCED [None]
  - CONSTIPATION [None]
  - DRUG EXPOSURE DURING PREGNANCY [None]
  - INTESTINAL FUNCTIONAL DISORDER [None]
  - MALAISE [None]
  - PREGNANCY [None]
